FAERS Safety Report 9120056 (Version 1)
Quarter: 2013Q1

REPORT INFORMATION
  Report Type: Report from Study
  Country: FR (occurrence: FR)
  Receive Date: 20130226
  Receipt Date: 20130226
  Transmission Date: 20140127
  Serious: Yes (Hospitalization)
  Sender: FDA-Public Use
  Company Number: PHHO2013FR002322

PATIENT
  Sex: 0

DRUGS (4)
  1. EVEROLIMUS [Suspect]
     Indication: RENAL TRANSPLANT
     Dosage: 3.25 MG, BID
     Route: 002
     Dates: start: 20121117
  2. CELLCEPT [Suspect]
     Indication: RENAL TRANSPLANT
     Dosage: 750 MG, UNK
     Route: 002
     Dates: start: 20120930
  3. CELLCEPT [Suspect]
     Dosage: UNK
     Route: 002
  4. CORTANCYL [Suspect]
     Indication: RENAL TRANSPLANT
     Dosage: 5 MG, QD
     Route: 002
     Dates: start: 20121001

REACTIONS (3)
  - Renal failure acute [Recovered/Resolved]
  - Cardiac failure [Unknown]
  - Acute myocardial infarction [Recovering/Resolving]
